FAERS Safety Report 21407622 (Version 1)
Quarter: 2022Q4

REPORT INFORMATION
  Report Type: Report from Study
  Country: KR (occurrence: KR)
  Receive Date: 20221004
  Receipt Date: 20221004
  Transmission Date: 20230112
  Serious: Yes (Hospitalization, Other)
  Sender: FDA-Public Use
  Company Number: KR-GLAXOSMITHKLINE-KR2022GSK137473

PATIENT

DRUGS (15)
  1. BELIMUMAB [Suspect]
     Active Substance: BELIMUMAB
     Indication: Systemic lupus erythematosus
     Dosage: 400, FOR THE FIRST THREE INFUSION EVERY 2 WEEK, AFTER THAT EVERY 4 WEEK
     Route: 042
     Dates: start: 20220602
  2. GASTER TABLET [Concomitant]
     Indication: Chronic gastritis
     Dosage: 20 MG, 1, BID
     Route: 048
     Dates: start: 20220525
  3. CORTISOLU INJECTION [Concomitant]
     Indication: Product used for unknown indication
     Dosage: 100 MG, QD (0.5)
     Route: 042
     Dates: start: 20220824, end: 20220824
  4. CORTISOLU INJECTION [Concomitant]
     Dosage: 100 MG, QD, (0.5)
     Route: 042
     Dates: start: 20220701, end: 20220701
  5. CORTISOLU INJECTION [Concomitant]
     Dosage: 100 MG, QD,(0.5)
     Route: 042
     Dates: start: 20220616, end: 20220616
  6. CORTISOLU INJECTION [Concomitant]
     Dosage: 100 MG, QD, (0.5)
     Route: 042
     Dates: start: 20220602, end: 20220602
  7. MYREPT CAPSULE [Concomitant]
     Indication: Product used for unknown indication
     Dosage: 1, BID, (200 MG)
     Route: 048
     Dates: start: 20220308
  8. HYDROXYCHLOROQUINE SULFATE [Concomitant]
     Active Substance: HYDROXYCHLOROQUINE SULFATE
     Indication: Product used for unknown indication
     Dosage: 1, QD, (200 MG)
     Route: 048
     Dates: start: 20220215
  9. SOLONDO TABLET [Concomitant]
     Indication: Product used for unknown indication
     Dosage: 2, QD, (5 MG)
     Route: 048
     Dates: start: 20220525, end: 20220824
  10. SOLONDO TABLET [Concomitant]
     Dosage: 7.5, QD
     Route: 048
     Dates: start: 20220825, end: 20220925
  11. REBAMIPIDE [Concomitant]
     Active Substance: REBAMIPIDE
     Indication: Prophylaxis
     Dosage: 1, BID, (100 MG)
     Route: 048
     Dates: start: 20220525, end: 20220701
  12. TEPRA [Concomitant]
     Indication: Hypertension
     Dosage: 1, BID, (40 MG)
     Route: 048
     Dates: start: 20220525
  13. METOCLOPRAMIDE HYDROCHLORIDE [Concomitant]
     Active Substance: METOCLOPRAMIDE HYDROCHLORIDE
     Indication: Prophylaxis
     Dosage: 5 MG, BID
     Route: 048
     Dates: start: 20220525, end: 20220607
  14. FERROUS SULFATE\PROTEASE [Concomitant]
     Active Substance: FERROUS SULFATE\PROTEASE
     Indication: Iron deficiency anaemia
     Dosage: 1, QD
     Route: 048
     Dates: start: 20220525, end: 20220701
  15. KERAMIN [Concomitant]
     Indication: Skin disorder prophylaxis
     Dosage: 1 BID
     Route: 048
     Dates: start: 20220525

REACTIONS (1)
  - Pancreatitis acute [Recovered/Resolved]

NARRATIVE: CASE EVENT DATE: 20220924
